FAERS Safety Report 25756227 (Version 1)
Quarter: 2025Q3

REPORT INFORMATION
  Report Type: Spontaneous
  Country: EG (occurrence: EG)
  Receive Date: 20250903
  Receipt Date: 20250903
  Transmission Date: 20251020
  Serious: Yes (Other)
  Sender: NOVO NORDISK
  Company Number: EG-NOVOPROD-1507377

PATIENT
  Age: 784 Month
  Sex: Female
  Weight: 88 kg

DRUGS (10)
  1. PLAVIX [Concomitant]
     Active Substance: CLOPIDOGREL BISULFATE
     Indication: Anticoagulant therapy
     Route: 048
     Dates: start: 20250801
  2. ASPIRIN [Concomitant]
     Active Substance: ASPIRIN
     Indication: Anticoagulant therapy
     Route: 048
     Dates: start: 20250801
  3. EMPACOZA [Concomitant]
     Indication: Cardiac disorder
     Route: 048
     Dates: start: 20250801
  4. ZYROVAZET [Concomitant]
     Indication: Blood cholesterol abnormal
     Route: 048
     Dates: start: 20250801
  5. CONTROLOC [Concomitant]
     Active Substance: PANTOPRAZOLE SODIUM
     Indication: Gastrointestinal disorder
     Route: 048
     Dates: start: 20250801
  6. METOPROLOL SUCCINATE [Concomitant]
     Active Substance: METOPROLOL SUCCINATE
     Indication: Hypertension
     Route: 048
     Dates: start: 20250801
  7. METOPROLOL SUCCINATE [Concomitant]
     Active Substance: METOPROLOL SUCCINATE
     Indication: Cardiac disorder
  8. LANTUS [Concomitant]
     Active Substance: INSULIN GLARGINE
     Indication: Diabetes mellitus
     Route: 058
  9. LANTUS [Concomitant]
     Active Substance: INSULIN GLARGINE
     Route: 058
  10. NOVORAPID [Suspect]
     Active Substance: INSULIN ASPART
     Indication: Product used for unknown indication
     Dosage: 30 IU, QD(15U BEFORE BREAKFAST AND LUNCH EACH)
     Route: 058
     Dates: end: 20250801

REACTIONS (7)
  - Gangrene [Not Recovered/Not Resolved]
  - Ischaemic stroke [Unknown]
  - Arterial occlusive disease [Unknown]
  - Cerebral ischaemia [Not Recovered/Not Resolved]
  - Stent placement [Not Recovered/Not Resolved]
  - Hyperglycaemia [Unknown]
  - Drug ineffective [Unknown]

NARRATIVE: CASE EVENT DATE: 20240101
